FAERS Safety Report 13689928 (Version 4)
Quarter: 2021Q2

REPORT INFORMATION
  Report Type: Spontaneous
  Country: US (occurrence: US)
  Receive Date: 20170626
  Receipt Date: 20210618
  Transmission Date: 20210716
  Serious: Yes (Other)
  Sender: FDA-Public Use
  Company Number: US-PFIZER INC-2017271279

PATIENT
  Age: 57 Year
  Sex: Female

DRUGS (1)
  1. LYRICA [Suspect]
     Active Substance: PREGABALIN
     Dosage: 100 MG, TWICE DAILY

REACTIONS (11)
  - Hyperhidrosis [Unknown]
  - Diabetes mellitus [Unknown]
  - Memory impairment [Unknown]
  - Fibromyalgia [Unknown]
  - Nausea [Unknown]
  - Chills [Unknown]
  - Withdrawal syndrome [Unknown]
  - Eating disorder [Unknown]
  - Dysphagia [Unknown]
  - Nasopharyngitis [Unknown]
  - Cough [Unknown]
